FAERS Safety Report 23733514 (Version 1)
Quarter: 2024Q2

REPORT INFORMATION
  Report Type: Spontaneous
  Country: CA (occurrence: None)
  Receive Date: 20240411
  Receipt Date: 20240411
  Transmission Date: 20240716
  Serious: Yes (Other)
  Sender: FDA-Public Use
  Company Number: CA-ROCHE-3541572

PATIENT
  Age: 13 Year
  Sex: Female
  Weight: 33 kg

DRUGS (5)
  1. SOMATROPIN [Suspect]
     Active Substance: SOMATROPIN
     Indication: Growth hormone deficiency
     Route: 058
  2. SOMATROPIN [Suspect]
     Active Substance: SOMATROPIN
     Indication: Product used for unknown indication
     Route: 058
  3. SOMATROPIN [Suspect]
     Active Substance: SOMATROPIN
     Route: 058
  4. SOMATROPIN [Suspect]
     Active Substance: SOMATROPIN
     Route: 058
  5. SOMATROPIN [Suspect]
     Active Substance: SOMATROPIN
     Route: 058

REACTIONS (5)
  - Blood alkaline phosphatase increased [Not Recovered/Not Resolved]
  - Blood follicle stimulating hormone increased [Not Recovered/Not Resolved]
  - Blood test abnormal [Not Recovered/Not Resolved]
  - Initial insomnia [Not Recovered/Not Resolved]
  - Snoring [Not Recovered/Not Resolved]
